FAERS Safety Report 12818618 (Version 1)
Quarter: 2016Q4

REPORT INFORMATION
  Report Type: Spontaneous
  Country: ES (occurrence: ES)
  Receive Date: 20161006
  Receipt Date: 20161006
  Transmission Date: 20170207
  Serious: Yes (Life-Threatening, Hospitalization, Other)
  Sender: FDA-Public Use
  Company Number: ES-GLENMARK PHARMACEUTICALS INC, USA.-2016GMK024458

PATIENT

DRUGS (1)
  1. SULFAMETHOXAZOLE/TRIMETHOPRIM TABLETS [Suspect]
     Active Substance: SULFAMETHOXAZOLE\TRIMETHOPRIM
     Indication: PRODUCT USED FOR UNKNOWN INDICATION
     Dosage: 1 DF, TID (EVERY 8 HRS)
     Route: 048

REACTIONS (1)
  - Anaphylactic shock [Recovered/Resolved]
